FAERS Safety Report 7588474-9 (Version None)
Quarter: 2011Q3

REPORT INFORMATION
  Report Type: 
  Country: None (occurrence: None)
  Receive Date: 20110705
  Receipt Date: 20110627
  Transmission Date: 20111222
  Serious: Yes (Other)
  Sender: FDA-Public Use
  Company Number: US-PFIZER INC-2011142875

PATIENT
  Sex: Female
  Weight: 77 kg

DRUGS (5)
  1. ATENOLOL [Concomitant]
     Indication: HYPERTENSION
     Dosage: UNK
  2. ACETYLSALICYLIC ACID [Concomitant]
     Dosage: 80 MG, 1X/DAY
  3. XALATAN [Suspect]
     Indication: INTRAOCULAR PRESSURE INCREASED
     Dosage: ONE DROP IN EACH EYE
     Route: 047
  4. XALATAN [Suspect]
     Indication: GLAUCOMA
  5. PRAVASTATIN [Concomitant]
     Indication: BLOOD CHOLESTEROL INCREASED
     Dosage: UNK

REACTIONS (6)
  - CAROTID ARTERY OCCLUSION [None]
  - APHASIA [None]
  - BACK DISORDER [None]
  - CEREBROVASCULAR ACCIDENT [None]
  - COMMUNICATION DISORDER [None]
  - DYSGRAPHIA [None]
